FAERS Safety Report 7541659-X (Version None)
Quarter: 2011Q2

REPORT INFORMATION
  Report Type: 
  Country: None (occurrence: None)
  Receive Date: 20110613
  Receipt Date: 20110602
  Transmission Date: 20111010
  Serious: No
  Sender: FDA-Public Use
  Company Number: US-JNJFOC-20110602898

PATIENT
  Sex: Female

DRUGS (1)
  1. FENTANYL-100 [Suspect]
     Indication: COMPRESSION FRACTURE
     Dosage: NDC 0781-7241-55
     Route: 062
     Dates: start: 20101001

REACTIONS (5)
  - GAIT DISTURBANCE [None]
  - WRONG TECHNIQUE IN DRUG USAGE PROCESS [None]
  - PAIN [None]
  - FALL [None]
  - PRODUCT QUALITY ISSUE [None]
